FAERS Safety Report 5508997-3 (Version None)
Quarter: 2007Q4

REPORT INFORMATION
  Report Type: 
  Country: None (occurrence: None)
  Receive Date: 20071031
  Receipt Date: 20070823
  Transmission Date: 20080405
  Serious: No
  Sender: FDA-Public Use
  Company Number: 2007PV033352

PATIENT
  Age: 52 Year
  Sex: Male

DRUGS (4)
  1. SYMLIN [Suspect]
     Indication: TYPE 2 DIABETES MELLITUS
     Dosage: 180 MCG;TID;SC   120 MCG;TID;SC  60 MCG;TID;SC
     Route: 058
     Dates: start: 20070601, end: 20070101
  2. SYMLIN [Suspect]
     Indication: TYPE 2 DIABETES MELLITUS
     Dosage: 180 MCG;TID;SC   120 MCG;TID;SC  60 MCG;TID;SC
     Route: 058
     Dates: start: 20070101, end: 20070731
  3. SYMLIN [Suspect]
     Indication: TYPE 2 DIABETES MELLITUS
     Dosage: 180 MCG;TID;SC   120 MCG;TID;SC  60 MCG;TID;SC
     Route: 058
     Dates: start: 20070801
  4. INSULIN [Concomitant]

REACTIONS (1)
  - INJECTION SITE PAIN [None]
